FAERS Safety Report 19745897 (Version 1)
Quarter: 2021Q3

REPORT INFORMATION
  Report Type: Spontaneous
  Country: US (occurrence: US)
  Receive Date: 20210824
  Receipt Date: 20210824
  Transmission Date: 20211014
  Serious: Yes (Hospitalization)
  Sender: FDA-Public Use
  Company Number: None

PATIENT
  Age: 59 Year
  Sex: Female

DRUGS (1)
  1. HUMIRA [Suspect]
     Active Substance: ADALIMUMAB
     Indication: ANKYLOSING SPONDYLITIS
     Dosage: ?          OTHER FREQUENCY:EVERY OTHER WEEK;?
     Route: 058
     Dates: start: 20190618

REACTIONS (7)
  - Joint stiffness [None]
  - Fatigue [None]
  - Condition aggravated [None]
  - Infection [None]
  - Pneumonia [None]
  - Therapy interrupted [None]
  - Intervertebral disc protrusion [None]

NARRATIVE: CASE EVENT DATE: 20210801
